FAERS Safety Report 24293910 (Version 1)
Quarter: 2024Q3

REPORT INFORMATION
  Report Type: Spontaneous
  Country: US (occurrence: None)
  Receive Date: 20240906
  Receipt Date: 20240906
  Transmission Date: 20241016
  Serious: No
  Sender: DOMPE FARMACEUTICI
  Company Number: US-FARMAPROD-202403-0807

PATIENT
  Age: 55 Year
  Sex: Male

DRUGS (16)
  1. OXERVATE [Suspect]
     Active Substance: CENEGERMIN-BKBJ
     Indication: Neurotrophic keratopathy
     Route: 047
     Dates: start: 20240304
  2. OXERVATE [Suspect]
     Active Substance: CENEGERMIN-BKBJ
  3. RESTASIS [Concomitant]
     Active Substance: CYCLOSPORINE
  4. SYSTANE (HYPROMELLOSE 2910 (4000 MPA.S)) [Concomitant]
     Active Substance: HYPROMELLOSE 2910 (4000 MPA.S)
     Dosage: 3 %-94 %
  5. SYSTANE (HYPROMELLOSE 2910 (4000 MPA.S)) [Concomitant]
     Active Substance: HYPROMELLOSE 2910 (4000 MPA.S)
     Dosage: 0.3 %-0.4%
  6. METHOCARBAMOL [Concomitant]
     Active Substance: METHOCARBAMOL
  7. TRAMADOL HCL [Concomitant]
     Active Substance: TRAMADOL HYDROCHLORIDE
  8. IBUPROFEN [Concomitant]
     Active Substance: IBUPROFEN
  9. MINERALS\VITAMINS [Concomitant]
     Active Substance: MINERALS\VITAMINS
     Dosage: .4-300-250
  10. CRESTOR [Concomitant]
     Active Substance: ROSUVASTATIN CALCIUM
  11. LISINOPRIL [Concomitant]
     Active Substance: LISINOPRIL
  12. OZEMPIC [Concomitant]
     Active Substance: SEMAGLUTIDE
     Dosage: 1/0.75 (3) PEN INJECTOR
  13. GABAPENTIN [Concomitant]
     Active Substance: GABAPENTIN
  14. VALACYCLOVIR [Concomitant]
     Active Substance: VALACYCLOVIR HYDROCHLORIDE
  15. NOVOLOG [Concomitant]
     Active Substance: INSULIN ASPART
     Dosage: VIAL
  16. AMOXICILLIN\CLAVULANATE POTASSIUM [Concomitant]
     Active Substance: AMOXICILLIN\CLAVULANATE POTASSIUM

REACTIONS (8)
  - Eye irritation [Unknown]
  - Ocular discomfort [Unknown]
  - Photophobia [Not Recovered/Not Resolved]
  - Vision blurred [Unknown]
  - Eye pain [Unknown]
  - Headache [Unknown]
  - Visual impairment [Unknown]
  - Dry eye [Recovering/Resolving]

NARRATIVE: CASE EVENT DATE: 20240301
